FAERS Safety Report 8860136 (Version 1)
Quarter: 2012Q4

REPORT INFORMATION
  Report Type: 
  Country: US (occurrence: US)
  Receive Date: 20121025
  Receipt Date: 20121025
  Transmission Date: 20130627
  Serious: No
  Sender: FDA-Public Use
  Company Number: US-009507513-1210USA004921

PATIENT
  Sex: Male

DRUGS (1)
  1. PRINIVIL [Suspect]
     Dosage: UNK
     Route: 048
     Dates: start: 1992

REACTIONS (2)
  - Drug hypersensitivity [Unknown]
  - Cough [Unknown]
